FAERS Safety Report 17864800 (Version 2)
Quarter: 2020Q2

REPORT INFORMATION
  Report Type: Spontaneous
  Country: CN (occurrence: CN)
  Receive Date: 20200605
  Receipt Date: 20200611
  Transmission Date: 20200714
  Serious: Yes (Other)
  Sender: FDA-Public Use
  Company Number: CN-ASTRAZENECA-2020SE72017

PATIENT
  Age: 71 Year
  Sex: Male

DRUGS (2)
  1. IRESSA [Suspect]
     Active Substance: GEFITINIB
     Indication: NON-SMALL CELL LUNG CANCER
     Route: 048
     Dates: start: 201703, end: 20200123
  2. ZOLEDRONIC ACID [Concomitant]
     Active Substance: ZOLEDRONIC ACID
     Indication: METASTASES TO BONE
     Dosage: EVERY TWO MONTHS
     Route: 041
     Dates: start: 201703

REACTIONS (4)
  - Drug resistance [Recovering/Resolving]
  - Neoplasm progression [Recovering/Resolving]
  - Malignant neoplasm progression [Recovering/Resolving]
  - Appetite disorder [Recovering/Resolving]

NARRATIVE: CASE EVENT DATE: 201912
